FAERS Safety Report 17284947 (Version 2)
Quarter: 2020Q1

REPORT INFORMATION
  Report Type: Spontaneous
  Country: CA (occurrence: CA)
  Receive Date: 20200117
  Receipt Date: 20200218
  Transmission Date: 20200409
  Serious: No
  Sender: FDA-Public Use
  Company Number: CA-BAUSCH-BL-2020-000398

PATIENT
  Age: 89 Year
  Sex: Male
  Weight: 79.45 kg

DRUGS (3)
  1. ALDARA [Suspect]
     Active Substance: IMIQUIMOD
     Indication: MALIGNANT NEOPLASM OF EYE
     Dosage: APPLY TWICE A DAY, MORNING AND EVENING, 5 TIMES A WEEK?PUMP 7.5G
     Route: 061
     Dates: start: 20191005, end: 20200207
  2. ATENOLOL. [Concomitant]
     Active Substance: ATENOLOL
     Indication: HYPERTENSION
     Dosage: HALF PILL OF 50 MG
  3. ALDARA [Suspect]
     Active Substance: IMIQUIMOD
     Indication: PRODUCT USE IN UNAPPROVED INDICATION

REACTIONS (4)
  - No adverse event [Unknown]
  - Product use in unapproved indication [Unknown]
  - Product administered at inappropriate site [Unknown]
  - Product packaging quantity issue [Unknown]

NARRATIVE: CASE EVENT DATE: 20191005
